FAERS Safety Report 17666068 (Version 4)
Quarter: 2021Q1

REPORT INFORMATION
  Report Type: Spontaneous
  Country: US (occurrence: US)
  Receive Date: 20200414
  Receipt Date: 20210114
  Transmission Date: 20210419
  Serious: Yes (Life-Threatening, Hospitalization)
  Sender: FDA-Public Use
  Company Number: US-ABBVIE-20K-163-3362478-00

PATIENT
  Age: 58 Year
  Sex: Male

DRUGS (3)
  1. IBRUTINIB [Suspect]
     Active Substance: IBRUTINIB
     Indication: WALDENSTROM^S MACROGLOBULINAEMIA
     Dosage: REDUCED DOSE
     Route: 048
  2. IBRUTINIB [Suspect]
     Active Substance: IBRUTINIB
     Indication: PYREXIA
     Dosage: ON DAYS 11 AND DAY 12 OF HOSPITALIZATION
     Route: 048
  3. IBRUTINIB [Suspect]
     Active Substance: IBRUTINIB
     Indication: HYPOXIA
     Route: 048

REACTIONS (3)
  - Therapeutic response unexpected [Unknown]
  - Coronavirus infection [Recovering/Resolving]
  - Mechanical ventilation [Recovered/Resolved]
